FAERS Safety Report 20016466 (Version 1)
Quarter: 2021Q4

REPORT INFORMATION
  Report Type: Spontaneous
  Country: US (occurrence: None)
  Receive Date: 20211103
  Receipt Date: 20211103
  Transmission Date: 20220303
  Serious: Yes (Other)
  Sender: FDA-Public Use
  Company Number: None

PATIENT
  Age: 67 Year
  Sex: Female

DRUGS (1)
  1. ISOVUE 300 [Suspect]
     Active Substance: IOPAMIDOL
     Indication: X-ray with contrast
     Dosage: FREQUENCY : AS NEEDED;?
     Route: 042

REACTIONS (4)
  - Eye pruritus [None]
  - Throat irritation [None]
  - Oral mucosal blistering [None]
  - Eye irritation [None]

NARRATIVE: CASE EVENT DATE: 20211012
